FAERS Safety Report 5291218-7 (Version None)
Quarter: 2007Q2

REPORT INFORMATION
  Report Type: 
  Country: None (occurrence: None)
  Receive Date: 20070409
  Receipt Date: 20070221
  Transmission Date: 20071010
  Serious: Yes (Hospitalization, Other)
  Sender: FDA-Public Use
  Company Number: US-PFIZER INC-2006129827

PATIENT
  Sex: Female
  Weight: 76.2 kg

DRUGS (3)
  1. BEXTRA [Suspect]
     Indication: BACK PAIN
  2. BEXTRA [Suspect]
     Indication: NECK PAIN
  3. BEXTRA [Suspect]
     Indication: NERVE COMPRESSION

REACTIONS (6)
  - ANXIETY [None]
  - DRUG HYPERSENSITIVITY [None]
  - HAEMORRHAGIC STROKE [None]
  - HYPERTENSION [None]
  - PSORIASIS [None]
  - STRESS [None]
